FAERS Safety Report 17541012 (Version 1)
Quarter: 2020Q1

REPORT INFORMATION
  Report Type: Spontaneous
  Country: DK (occurrence: DE)
  Receive Date: 20200313
  Receipt Date: 20200313
  Transmission Date: 20200409
  Serious: Yes (Other)
  Sender: FDA-Public Use
  Company Number: DE-ALLERGAN-S04-GER-01373-01

PATIENT
  Sex: Female
  Weight: 72 kg

DRUGS (1)
  1. CITALOPRAM HYDROBROMIDE - BP [Suspect]
     Active Substance: CITALOPRAM HYDROBROMIDE
     Indication: DEPRESSION
     Dosage: 20 MG, QD
     Route: 048
     Dates: start: 200306, end: 200311

REACTIONS (1)
  - Prurigo [Recovered/Resolved with Sequelae]

NARRATIVE: CASE EVENT DATE: 2003
